FAERS Safety Report 10026432 (Version 1)
Quarter: 2014Q1

REPORT INFORMATION
  Report Type: Spontaneous
  Country: US (occurrence: US)
  Receive Date: 20140321
  Receipt Date: 20140321
  Transmission Date: 20141002
  Serious: Yes (Other)
  Sender: FDA-Public Use
  Company Number: US-BIOGENIDEC-2014BI025048

PATIENT
  Age: 59 Year
  Sex: Male

DRUGS (3)
  1. TYSABRI [Suspect]
     Indication: RELAPSING-REMITTING MULTIPLE SCLEROSIS
     Route: 042
  2. AVONEX [Concomitant]
     Indication: RELAPSING-REMITTING MULTIPLE SCLEROSIS
  3. FINGOLIMOD [Concomitant]
     Indication: RELAPSING-REMITTING MULTIPLE SCLEROSIS

REACTIONS (1)
  - Glioblastoma multiforme [Not Recovered/Not Resolved]
